FAERS Safety Report 9344781 (Version 1)
Quarter: 2013Q2

REPORT INFORMATION
  Report Type: Spontaneous
  Country: TH (occurrence: TH)
  Receive Date: 20130612
  Receipt Date: 20130612
  Transmission Date: 20140414
  Serious: Yes (Other)
  Sender: FDA-Public Use
  Company Number: TH-PFIZER INC-2013175382

PATIENT
  Age: 65 Year
  Sex: Female

DRUGS (3)
  1. AMLODIPINE BESILATE [Suspect]
     Indication: METABOLIC SYNDROME
     Dosage: UNK
  2. ATENOLOL [Concomitant]
     Indication: METABOLIC SYNDROME
     Dosage: UNK
  3. SIMVASTATIN [Concomitant]
     Indication: METABOLIC SYNDROME
     Dosage: UNK

REACTIONS (2)
  - Stevens-Johnson syndrome [Recovering/Resolving]
  - Stomatitis [Recovering/Resolving]
